FAERS Safety Report 12703106 (Version 2)
Quarter: 2017Q1

REPORT INFORMATION
  Report Type: Spontaneous
  Country: US (occurrence: US)
  Receive Date: 20160831
  Receipt Date: 20170221
  Transmission Date: 20170428
  Serious: No
  Sender: FDA-Public Use
  Company Number: US-GLAXOSMITHKLINE-US2016GSK123884

PATIENT
  Age: 32 Year
  Sex: Female
  Weight: 86.17 kg

DRUGS (2)
  1. BENLYSTA [Suspect]
     Active Substance: BELIMUMAB
     Indication: AUTOANTIBODY POSITIVE
  2. BENLYSTA [Suspect]
     Active Substance: BELIMUMAB
     Indication: SYSTEMIC LUPUS ERYTHEMATOSUS
     Dosage: UNK UNK, U
     Dates: end: 20160824

REACTIONS (6)
  - Hypersensitivity [Recovered/Resolved]
  - Dehydration [Unknown]
  - Vein collapse [Unknown]
  - Peripheral swelling [Unknown]
  - Erythema [Unknown]
  - Pain in extremity [Unknown]

NARRATIVE: CASE EVENT DATE: 20160822
